FAERS Safety Report 16333427 (Version 3)
Quarter: 2020Q4

REPORT INFORMATION
  Report Type: Spontaneous
  Country: US (occurrence: US)
  Receive Date: 20190520
  Receipt Date: 20201110
  Transmission Date: 20210113
  Serious: Yes (Hospitalization, Other)
  Sender: FDA-Public Use
  Company Number: US-GILEAD-2019-0407758

PATIENT
  Age: 33 Year
  Sex: Male
  Weight: 86.17 kg

DRUGS (37)
  1. TRUVADA [Suspect]
     Active Substance: EMTRICITABINE\TENOFOVIR DISOPROXIL FUMARATE
     Indication: HIV INFECTION
     Dosage: UNK
     Route: 048
     Dates: start: 2006, end: 2013
  2. PREZISTA [Concomitant]
     Active Substance: DARUNAVIR ETHANOLATE
  3. FOLIC ACID. [Concomitant]
     Active Substance: FOLIC ACID
  4. RALTEGRAVIR. [Concomitant]
     Active Substance: RALTEGRAVIR
  5. TRAZODONE [Concomitant]
     Active Substance: TRAZODONE HYDROCHLORIDE
  6. CALCITROL [CALCITRIOL] [Concomitant]
     Active Substance: CALCITRIOL
  7. NASCOBAL [Concomitant]
     Active Substance: CYANOCOBALAMIN
  8. OMEPRAZOLE. [Concomitant]
     Active Substance: OMEPRAZOLE
  9. TAB A VITE [Concomitant]
  10. AZITHROMYCIN ANHYDROUS. [Concomitant]
     Active Substance: AZITHROMYCIN ANHYDROUS
  11. ETHAMBUTOL [Concomitant]
     Active Substance: ETHAMBUTOL HYDROCHLORIDE
  12. ATRIPLA [Suspect]
     Active Substance: EFAVIRENZ\EMTRICITABINE\TENOFOVIR DISOPROXIL FUMARATE
     Dosage: UNK
     Route: 048
     Dates: start: 2006, end: 2009
  13. ISENTRESS [Concomitant]
     Active Substance: RALTEGRAVIR POTASSIUM
  14. SYMTUZA [Concomitant]
     Active Substance: COBICISTAT\DARUNAVIR\EMTRICITABINE\TENOFOVIR ALAFENAMIDE
  15. MIRTAZAPINE. [Concomitant]
     Active Substance: MIRTAZAPINE
  16. RITONAVIR. [Concomitant]
     Active Substance: RITONAVIR
  17. STRIBILD [Suspect]
     Active Substance: COBICISTAT\ELVITEGRAVIR\EMTRICITABINE\TENOFOVIR DISOPROXIL FUMARATE
     Indication: HIV INFECTION
     Dosage: UNK
     Route: 048
     Dates: start: 2006, end: 2017
  18. NORVIR [Concomitant]
     Active Substance: RITONAVIR
  19. CITALOPRAM [Concomitant]
     Active Substance: CITALOPRAM HYDROBROMIDE
  20. DARUNAVIR [Concomitant]
     Active Substance: DARUNAVIR
  21. BUPROPION. [Concomitant]
     Active Substance: BUPROPION
  22. NICOTINE. [Concomitant]
     Active Substance: NICOTINE
  23. FLUCONAZOLE. [Concomitant]
     Active Substance: FLUCONAZOLE
  24. TIVICAY [Concomitant]
     Active Substance: DOLUTEGRAVIR SODIUM
  25. FERROUS SULFATE. [Concomitant]
     Active Substance: FERROUS SULFATE
  26. SILDENAFIL. [Concomitant]
     Active Substance: SILDENAFIL
  27. HYDROCORTISONE. [Concomitant]
     Active Substance: HYDROCORTISONE
  28. RIFABUTIN. [Concomitant]
     Active Substance: RIFABUTIN
  29. CALCIUM [Concomitant]
     Active Substance: CALCIUM
  30. LISINOPRIL. [Concomitant]
     Active Substance: LISINOPRIL
  31. TIMOLOL. [Concomitant]
     Active Substance: TIMOLOL
  32. DAPSONE. [Concomitant]
     Active Substance: DAPSONE
  33. CYCLOBENZAPRINE. [Concomitant]
     Active Substance: CYCLOBENZAPRINE
  34. MULTI-VITAMINS VITAFIT [Concomitant]
     Active Substance: VITAMINS
  35. ATRIPLA [Suspect]
     Active Substance: EFAVIRENZ\EMTRICITABINE\TENOFOVIR DISOPROXIL FUMARATE
     Indication: HIV INFECTION
     Dosage: UNK
     Route: 048
     Dates: start: 2006, end: 2017
  36. PREZCOBIX [Concomitant]
     Active Substance: COBICISTAT\DARUNAVIR ETHANOLATE
  37. ALDARA [Concomitant]
     Active Substance: IMIQUIMOD

REACTIONS (10)
  - Fatigue [Unknown]
  - Pain [Not Recovered/Not Resolved]
  - Economic problem [Not Recovered/Not Resolved]
  - Anhedonia [Not Recovered/Not Resolved]
  - Chronic kidney disease [Not Recovered/Not Resolved]
  - Renal failure [Not Recovered/Not Resolved]
  - General physical health deterioration [Not Recovered/Not Resolved]
  - Quality of life decreased [Not Recovered/Not Resolved]
  - Emotional distress [Not Recovered/Not Resolved]
  - Anxiety [Not Recovered/Not Resolved]

NARRATIVE: CASE EVENT DATE: 20060806
